FAERS Safety Report 21626734 (Version 1)
Quarter: 2022Q4

REPORT INFORMATION
  Report Type: Spontaneous
  Country: MX (occurrence: None)
  Receive Date: 20221122
  Receipt Date: 20221122
  Transmission Date: 20230113
  Serious: Yes (Other)
  Sender: FDA-Public Use
  Company Number: MX-Orion Corporation ORION PHARMA-ENTC2022-0226

PATIENT
  Age: 84 Year
  Sex: Female
  Weight: 41 kg

DRUGS (5)
  1. STALEVO [Suspect]
     Active Substance: CARBIDOPA\ENTACAPONE\LEVODOPA
     Indication: Parkinson^s disease
     Dosage: STRENGTH: (50/12.5/200 MG)
     Route: 048
     Dates: start: 202201
  2. STALEVO [Suspect]
     Active Substance: CARBIDOPA\ENTACAPONE\LEVODOPA
     Dosage: DOSE: 0.5 DOSAGE FORM?STRENGTH: (50/12.5/200 MG)
     Route: 048
     Dates: start: 20221004
  3. LEVODOPA [Concomitant]
     Active Substance: LEVODOPA
     Dosage: ONGOING
     Route: 065
  4. QUETIAPINE [Concomitant]
     Active Substance: QUETIAPINE
     Route: 065
  5. PK-MERZ [Concomitant]
     Active Substance: AMANTADINE
     Dosage: ONGOING
     Route: 065

REACTIONS (4)
  - Parkinsonian crisis [Not Recovered/Not Resolved]
  - Product prescribing error [Unknown]
  - Wrong technique in product usage process [Unknown]
  - Hypertension [Not Recovered/Not Resolved]

NARRATIVE: CASE EVENT DATE: 20221004
